FAERS Safety Report 16251943 (Version 3)
Quarter: 2019Q2

REPORT INFORMATION
  Report Type: Spontaneous
  Country: JP (occurrence: JP)
  Receive Date: 20190429
  Receipt Date: 20190625
  Transmission Date: 20190711
  Serious: Yes (Hospitalization, Other)
  Sender: FDA-Public Use
  Company Number: JP-JNJFOC-20190435030

PATIENT
  Age: 9 Decade
  Sex: Female

DRUGS (4)
  1. LIMAS [Concomitant]
     Active Substance: LITHIUM CARBONATE
     Route: 048
     Dates: end: 20190415
  2. REMINYL [Suspect]
     Active Substance: GALANTAMINE
     Indication: PRODUCT USED FOR UNKNOWN INDICATION
     Route: 048
     Dates: end: 20190404
  3. YOKUKANSAN [Concomitant]
     Active Substance: HERBALS
     Route: 048
  4. REMINYL [Suspect]
     Active Substance: GALANTAMINE
     Route: 048
     Dates: start: 20190405, end: 20190415

REACTIONS (3)
  - Vomiting [Recovered/Resolved]
  - Acute kidney injury [Unknown]
  - Altered state of consciousness [Recovered/Resolved]

NARRATIVE: CASE EVENT DATE: 2019
